FAERS Safety Report 13537587 (Version 1)
Quarter: 2017Q2

REPORT INFORMATION
  Report Type: Spontaneous
  Country: GB (occurrence: GB)
  Receive Date: 20170511
  Receipt Date: 20170511
  Transmission Date: 20170830
  Serious: Yes (Other)
  Sender: FDA-Public Use
  Company Number: GB-ELI_LILLY_AND_COMPANY-GB201705000415

PATIENT
  Age: 51 Year
  Sex: Male

DRUGS (1)
  1. HUMALOG MIX50/50 [Suspect]
     Active Substance: INSULIN LISPRO
     Indication: PRODUCT USED FOR UNKNOWN INDICATION
     Dosage: 48 U, BID
     Route: 065
     Dates: start: 2015

REACTIONS (4)
  - Blindness [Unknown]
  - Blood glucose increased [Unknown]
  - Malabsorption [Unknown]
  - Injection site mass [Unknown]

NARRATIVE: CASE EVENT DATE: 20170417
